FAERS Safety Report 24318624 (Version 1)
Quarter: 2024Q3

REPORT INFORMATION
  Report Type: Other
  Country: IN (occurrence: IN)
  Receive Date: 20240913
  Receipt Date: 20240913
  Transmission Date: 20241016
  Serious: Yes (Hospitalization, Disabling, Other)
  Sender: MERCK KGAA
  Company Number: IN-Merck Healthcare KGaA-2024048542

PATIENT
  Age: 62 Year
  Sex: Female

DRUGS (1)
  1. LEVOTHYROXINE [Suspect]
     Active Substance: LEVOTHYROXINE\LEVOTHYROXINE SODIUM
     Indication: Product used for unknown indication

REACTIONS (6)
  - Thyroid function test abnormal [Recovered/Resolved]
  - Hyperglycaemia [Recovered/Resolved]
  - Hemiplegia [Unknown]
  - Aphasia [Unknown]
  - Atrial fibrillation [Recovered/Resolved]
  - Overdose [Unknown]
